FAERS Safety Report 4559181-1 (Version None)
Quarter: 2005Q1

REPORT INFORMATION
  Report Type: 
  Country: None (occurrence: None)
  Receive Date: 20050121
  Receipt Date: 20050121
  Transmission Date: 20050727
  Serious: Yes (Other)
  Sender: FDA-Public Use
  Company Number: None

PATIENT
  Age: 74 Year
  Sex: Male
  Weight: 63 kg

DRUGS (5)
  1. CIPROFLOXACIN [Suspect]
     Indication: DISEASE RECURRENCE
     Dosage: PO
     Route: 048
     Dates: start: 20040513, end: 20040729
  2. CIPROFLOXACIN [Suspect]
     Indication: LUNG INFECTION
     Dosage: PO
     Route: 048
     Dates: start: 20040513, end: 20040729
  3. AMIKACIN [Concomitant]
  4. AZITHROMYCIN [Concomitant]
  5. ETHAMBUTOL HCL [Concomitant]

REACTIONS (2)
  - PAIN IN EXTREMITY [None]
  - TENDONITIS [None]
